FAERS Safety Report 7727366-9 (Version None)
Quarter: 2011Q3

REPORT INFORMATION
  Report Type: 
  Country: None (occurrence: None)
  Receive Date: 20110902
  Receipt Date: 20110829
  Transmission Date: 20111222
  Serious: Yes (Death, Hospitalization)
  Sender: FDA-Public Use
  Company Number: PHHY2011JP76949

PATIENT
  Age: 64 Year
  Sex: Female

DRUGS (4)
  1. BEVACIZUMAB [Suspect]
  2. FLUOROURACIL [Suspect]
  3. LEUCOVORIN CALCIUM [Concomitant]
  4. IRINOTECAN HCL [Suspect]

REACTIONS (9)
  - DYSPNOEA [None]
  - PYREXIA [None]
  - CREPITATIONS [None]
  - NEOPLASM PROGRESSION [None]
  - METASTASES TO LUNG [None]
  - COUGH [None]
  - INTERSTITIAL LUNG DISEASE [None]
  - RESPIRATORY FAILURE [None]
  - LEUKOPENIA [None]
